FAERS Safety Report 8392437-3 (Version None)
Quarter: 2012Q2

REPORT INFORMATION
  Report Type: 
  Country: None (occurrence: None)
  Receive Date: 20120529
  Receipt Date: 20120514
  Transmission Date: 20120825
  Serious: Yes (Hospitalization, Other)
  Sender: FDA-Public Use
  Company Number: FR-CUBIST-2012S1000346

PATIENT
  Age: 56 Year
  Sex: Male
  Weight: 73 kg

DRUGS (14)
  1. CEFOTAXIME SODIUM [Suspect]
     Route: 042
     Dates: start: 20120210, end: 20120222
  2. AMLODIPINE BESYLATE [Concomitant]
     Indication: PRODUCT USED FOR UNKNOWN INDICATION
  3. BISOPROLOL FUMARATE [Concomitant]
     Indication: PRODUCT USED FOR UNKNOWN INDICATION
  4. CUBICIN [Suspect]
     Indication: ENDOCARDITIS
     Route: 042
     Dates: start: 20120210, end: 20120305
  5. ASPIRIN [Concomitant]
     Indication: PRODUCT USED FOR UNKNOWN INDICATION
  6. GENTAMICIN SULFATE [Concomitant]
     Indication: PRODUCT USED FOR UNKNOWN INDICATION
     Route: 042
     Dates: start: 20120210, end: 20120210
  7. ROSUVASTATIN [Concomitant]
     Indication: PRODUCT USED FOR UNKNOWN INDICATION
  8. ACETAMINOPHEN [Suspect]
     Indication: PRODUCT USED FOR UNKNOWN INDICATION
     Route: 048
     Dates: start: 20120301, end: 20120305
  9. CEFOTAXIME SODIUM [Suspect]
     Indication: ENDOCARDITIS
     Route: 042
     Dates: start: 20120222, end: 20120305
  10. HEPARIN [Concomitant]
     Indication: PRODUCT USED FOR UNKNOWN INDICATION
     Dosage: DOSE UNIT:U
  11. RAMIPRIL [Concomitant]
     Indication: PRODUCT USED FOR UNKNOWN INDICATION
  12. ESOMEPRAZOLE MAGNESIUM [Suspect]
     Indication: PRODUCT USED FOR UNKNOWN INDICATION
     Dates: start: 20120211, end: 20120305
  13. MINERAL TAB [Concomitant]
     Indication: PRODUCT USED FOR UNKNOWN INDICATION
     Dosage: DOSE UNIT:U
  14. ALL OTHER THERAPEUTIC PRODUCTS [Concomitant]
     Indication: PRODUCT USED FOR UNKNOWN INDICATION
     Dosage: DOSE UNIT:U

REACTIONS (2)
  - AGGRESSION [None]
  - AGRANULOCYTOSIS [None]
